FAERS Safety Report 10286264 (Version 1)
Quarter: 2014Q3

REPORT INFORMATION
  Report Type: Report from Study
  Country: US (occurrence: US)
  Receive Date: 20140709
  Receipt Date: 20140709
  Transmission Date: 20150326
  Serious: Yes (Hospitalization, Disabling, Other)
  Sender: FDA-Public Use
  Company Number: US-ROCHE-1431183

PATIENT
  Age: 31 Year
  Sex: Female
  Weight: 98 kg

DRUGS (11)
  1. VALIUM [Suspect]
     Active Substance: DIAZEPAM
     Indication: ANXIETY
     Dosage: AS NEEDED
     Route: 048
     Dates: start: 20100701, end: 20140315
  2. LITHIUM CARBONATE. [Concomitant]
     Active Substance: LITHIUM CARBONATE
     Indication: BIPOLAR II DISORDER
  3. SERTRALINE [Concomitant]
     Active Substance: SERTRALINE HYDROCHLORIDE
     Indication: MAJOR DEPRESSION
  4. ZOLPIDEM [Concomitant]
     Active Substance: ZOLPIDEM\ZOLPIDEM TARTRATE
     Indication: BIPOLAR I DISORDER
  5. VALIUM [Suspect]
     Active Substance: DIAZEPAM
     Indication: BIPOLAR I DISORDER
  6. PROPRANOLOL [Concomitant]
     Active Substance: PROPRANOLOL\PROPRANOLOL HYDROCHLORIDE
     Indication: ESSENTIAL TREMOR
  7. EPILIM [Concomitant]
     Active Substance: VALPROATE SODIUM
     Indication: BIPOLAR I DISORDER
  8. SEROQUEL [Concomitant]
     Active Substance: QUETIAPINE FUMARATE
     Indication: BIPOLAR I DISORDER
  9. VALIUM [Suspect]
     Active Substance: DIAZEPAM
     Indication: TREMOR
  10. VALIUM [Suspect]
     Active Substance: DIAZEPAM
     Indication: DYSKINESIA
  11. EFFEXOR XR [Concomitant]
     Active Substance: VENLAFAXINE HYDROCHLORIDE
     Indication: MAJOR DEPRESSION
     Route: 048
     Dates: start: 20090701, end: 20120630

REACTIONS (2)
  - Memory impairment [Unknown]
  - Apathy [Unknown]

NARRATIVE: CASE EVENT DATE: 20100701
